FAERS Safety Report 9049361 (Version 1)
Quarter: 2013Q1

REPORT INFORMATION
  Report Type: Spontaneous
  Country: FR (occurrence: None)
  Receive Date: 20130111
  Receipt Date: 20130111
  Transmission Date: 20140127
  Serious: No
  Sender: FDA-Public Use
  Company Number: 219987

PATIENT
  Age: 69 Year
  Sex: Male

DRUGS (4)
  1. INNOHEP (TINZAPA RIN SODIUM) (INJECTION) [Suspect]
     Indication: DEEP VEIN THROMBOSIS
     Route: 058
     Dates: start: 20121107, end: 20121113
  2. LOVENOX (ENOXAPARIN SODIUM) (INJECTION) [Concomitant]
  3. SODIC HEPARIN (PANPHARMA) (HEPARIN) (INJECTION) [Concomitant]
  4. CALCIPARIN (HEPARIN CALCIUM) (INJECTION) [Concomitant]

REACTIONS (2)
  - Heparin-induced thrombocytopenia [None]
  - Condition aggravated [None]
